FAERS Safety Report 22378221 (Version 3)
Quarter: 2024Q1

REPORT INFORMATION
  Report Type: Spontaneous
  Country: US (occurrence: US)
  Receive Date: 20230529
  Receipt Date: 20240119
  Transmission Date: 20240409
  Serious: No
  Sender: FDA-Public Use
  Company Number: US-ELI_LILLY_AND_COMPANY-US202305014509

PATIENT
  Age: 61 Year
  Sex: Female
  Weight: 46.712 kg

DRUGS (1)
  1. VERZENIO [Suspect]
     Active Substance: ABEMACICLIB
     Indication: Breast cancer female
     Dosage: 150 MG, BID
     Route: 048
     Dates: start: 20230406

REACTIONS (9)
  - COVID-19 [Unknown]
  - Weight decreased [Unknown]
  - Product dose omission issue [Unknown]
  - Somnolence [Unknown]
  - Abdominal pain upper [Unknown]
  - Decreased appetite [Unknown]
  - Nausea [Unknown]
  - Diarrhoea [Unknown]
  - Fatigue [Unknown]
